FAERS Safety Report 13903674 (Version 2)
Quarter: 2017Q3

REPORT INFORMATION
  Report Type: Spontaneous
  Country: LT (occurrence: LT)
  Receive Date: 20170824
  Receipt Date: 20170830
  Transmission Date: 20171127
  Serious: Yes (Other)
  Sender: FDA-Public Use
  Company Number: PHHY2017LT066115

PATIENT
  Age: 37 Year
  Sex: Female
  Weight: 58 kg

DRUGS (1)
  1. GILENYA [Suspect]
     Active Substance: FINGOLIMOD HYDROCHLORIDE
     Indication: MULTIPLE SCLEROSIS
     Dosage: 0.5 MG, QD
     Route: 048
     Dates: start: 20170428, end: 20170502

REACTIONS (7)
  - Herpes virus infection [Recovered/Resolved]
  - Eczema herpeticum [Recovered/Resolved]
  - Eye pain [Recovered/Resolved]
  - Glossodynia [Recovered/Resolved]
  - Herpes zoster disseminated [Recovered/Resolved]
  - Blister [Recovered/Resolved]
  - Ophthalmic herpes zoster [Recovered/Resolved]

NARRATIVE: CASE EVENT DATE: 20170428
